FAERS Safety Report 9583829 (Version 1)
Quarter: 2013Q4

REPORT INFORMATION
  Report Type: Spontaneous
  Country: US (occurrence: US)
  Receive Date: 20131002
  Receipt Date: 20131002
  Transmission Date: 20140711
  Serious: Yes (Other)
  Sender: FDA-Public Use
  Company Number: US-AMGEN-USASP2013049610

PATIENT
  Age: 23 Year
  Sex: Female
  Weight: 47.61 kg

DRUGS (5)
  1. ENBREL [Suspect]
     Indication: CROHN^S DISEASE
     Dosage: 50 MG, QWK
     Route: 058
  2. HUMIRA [Concomitant]
     Indication: CROHN^S DISEASE
     Dosage: UNK
  3. NEXIUM                             /01479302/ [Concomitant]
     Dosage: 20 MG, UNK
  4. CANASA [Concomitant]
     Dosage: 500 MG, UNK
  5. PROBIOTIC                          /06395501/ [Concomitant]
     Dosage: UNK

REACTIONS (2)
  - Crohn^s disease [Unknown]
  - Therapeutic response decreased [Unknown]
